FAERS Safety Report 10476169 (Version 4)
Quarter: 2015Q1

REPORT INFORMATION
  Report Type: Spontaneous
  Country: US (occurrence: US)
  Receive Date: 20140925
  Receipt Date: 20150331
  Transmission Date: 20150720
  Serious: Yes (Hospitalization)
  Sender: FDA-Public Use
  Company Number: US-ASTRAZENECA-2010SE44929

PATIENT
  Age: 65 Year
  Sex: Female
  Weight: 73.5 kg

DRUGS (14)
  1. PRILOSEC [Suspect]
     Active Substance: OMEPRAZOLE MAGNESIUM
     Route: 048
     Dates: end: 2001
  2. NEXIUM [Suspect]
     Active Substance: ESOMEPRAZOLE MAGNESIUM
     Route: 048
  3. ASPIRIN. [Concomitant]
     Active Substance: ASPIRIN
     Indication: OBSTRUCTION
     Route: 048
     Dates: start: 201009
  4. CENTRUM SILVER [Concomitant]
     Active Substance: VITAMINS
     Indication: BONE DISORDER
     Dosage: DAILY
     Route: 048
     Dates: start: 201009
  5. STOOL SOFTENER [Concomitant]
     Active Substance: DOCUSATE CALCIUM
  6. CLARITIN [Concomitant]
     Active Substance: LORATADINE
     Indication: MULTIPLE ALLERGIES
     Route: 048
     Dates: start: 201009
  7. MOBIC [Concomitant]
     Active Substance: MELOXICAM
     Indication: FIBROMYALGIA
  8. LYRICA [Concomitant]
     Active Substance: PREGABALIN
     Indication: PAIN
     Route: 048
     Dates: start: 2014
  9. MELOXICAM. [Concomitant]
     Active Substance: MELOXICAM
     Indication: NEURALGIA
     Route: 048
     Dates: start: 2010
  10. LIPITOR [Concomitant]
     Active Substance: ATORVASTATIN CALCIUM
     Indication: BLOOD CHOLESTEROL INCREASED
     Route: 048
  11. XANAX [Concomitant]
     Active Substance: ALPRAZOLAM
     Indication: NERVOUSNESS
     Route: 048
     Dates: start: 198408
  12. XANAX [Concomitant]
     Active Substance: ALPRAZOLAM
     Indication: FIBROMYALGIA
     Route: 048
     Dates: start: 198408
  13. INDURALL [Concomitant]
     Indication: CARDIAC DISORDER
     Route: 048
  14. CYMBALTA [Concomitant]
     Active Substance: DULOXETINE HYDROCHLORIDE
     Indication: FIBROMYALGIA
     Route: 048
     Dates: start: 201409

REACTIONS (37)
  - Cardiac disorder [Unknown]
  - Malaise [Unknown]
  - Constipation [Unknown]
  - Musculoskeletal discomfort [Unknown]
  - Nausea [Unknown]
  - Fall [Unknown]
  - Back disorder [Unknown]
  - West Nile virus test positive [Unknown]
  - Chronic obstructive pulmonary disease [Unknown]
  - Intervertebral disc protrusion [Unknown]
  - Intervertebral disc degeneration [Unknown]
  - Feeding disorder [Unknown]
  - Rheumatoid arthritis [Unknown]
  - Carpal tunnel syndrome [Unknown]
  - Arthritis [Unknown]
  - Nervousness [Unknown]
  - Hypoaesthesia [Unknown]
  - Weight decreased [Unknown]
  - Gastrooesophageal reflux disease [Unknown]
  - Drug ineffective [Unknown]
  - Pain in extremity [Unknown]
  - Wheezing [Unknown]
  - Oropharyngeal pain [Unknown]
  - Asthma [Unknown]
  - Drug dose omission [Unknown]
  - Pain [Unknown]
  - Osteoarthritis [Unknown]
  - Abasia [Unknown]
  - Limb discomfort [Unknown]
  - Abdominal discomfort [Unknown]
  - Therapeutic response unexpected [Unknown]
  - Cholelithiasis [Unknown]
  - Fibromyalgia [Unknown]
  - Back pain [Unknown]
  - Dyspepsia [Unknown]
  - Eructation [Unknown]
  - Intentional product misuse [Unknown]

NARRATIVE: CASE EVENT DATE: 2012
